FAERS Safety Report 24445869 (Version 1)
Quarter: 2024Q4

REPORT INFORMATION
  Report Type: Report from Study
  Country: US (occurrence: US)
  Receive Date: 20241016
  Receipt Date: 20241016
  Transmission Date: 20250114
  Serious: Yes (Hospitalization)
  Sender: BAYER HEALTHCARE PHARMACEUTICALS INC.
  Company Number: US-BAYER-2024A147120

PATIENT
  Age: 88 Year
  Sex: Female
  Weight: 64.399 kg

DRUGS (24)
  1. ADEMPAS [Suspect]
     Active Substance: RIOCIGUAT
     Indication: Pulmonary arterial hypertension
     Dosage: UNK
     Dates: start: 20240826
  2. ADEMPAS [Suspect]
     Active Substance: RIOCIGUAT
     Indication: Pulmonary arterial hypertension
     Dosage: 2 MG, TID
     Route: 048
  3. DONEPEZIL HYDROCHLORIDE [Concomitant]
     Active Substance: DONEPEZIL HYDROCHLORIDE
  4. ENULOSE [Concomitant]
     Active Substance: LACTULOSE
  5. OMEPRAZOLE [Concomitant]
     Active Substance: OMEPRAZOLE
  6. ATORVASTATIN CALCIUM [Concomitant]
     Active Substance: ATORVASTATIN CALCIUM
  7. SENNA [Concomitant]
     Active Substance: SENNA LEAF\SENNOSIDES\SENNOSIDES A AND B
  8. TIZANIDINE HYDROCHLORIDE [Concomitant]
     Active Substance: TIZANIDINE HYDROCHLORIDE
  9. ELIQUIS [Concomitant]
     Active Substance: APIXABAN
  10. MIRTAZAPINE [Concomitant]
     Active Substance: MIRTAZAPINE
  11. AZELASTINE HYDROCHLORIDE [Concomitant]
     Active Substance: AZELASTINE HYDROCHLORIDE
  12. DULOXETINE HYDROCHLORIDE [Concomitant]
     Active Substance: DULOXETINE HYDROCHLORIDE
  13. TRELEGY ELLIPTA [Concomitant]
     Active Substance: FLUTICASONE FUROATE\UMECLIDINIUM BROMIDE\VILANTEROL TRIFENATATE
  14. ALBUTEROL SULFATE [Concomitant]
     Active Substance: ALBUTEROL SULFATE
  15. LASIX [Concomitant]
     Active Substance: FUROSEMIDE
  16. ALBUTEROL SULFATE [Concomitant]
     Active Substance: ALBUTEROL SULFATE
  17. SOLIFENACIN SUCCINATE [Concomitant]
     Active Substance: SOLIFENACIN SUCCINATE
  18. DICLOFENAC SODIUM [Concomitant]
     Active Substance: DICLOFENAC SODIUM
  19. VESICARE [Concomitant]
     Active Substance: SOLIFENACIN SUCCINATE
  20. OXYGEN [Concomitant]
     Active Substance: OXYGEN
  21. CELECOXIB [Concomitant]
     Active Substance: CELECOXIB
  22. CICLOPIROX [Concomitant]
     Active Substance: CICLOPIROX
  23. BENZONATATE [Concomitant]
     Active Substance: BENZONATATE
  24. OXYCODONE AND ACETAMINOPHEN [Concomitant]
     Active Substance: ACETAMINOPHEN\OXYCODONE HYDROCHLORIDE

REACTIONS (1)
  - Musculoskeletal disorder [None]

NARRATIVE: CASE EVENT DATE: 20241006
